FAERS Safety Report 8479141 (Version 2)
Quarter: 2012Q4

REPORT INFORMATION
  Report Type: 
  Country: US (occurrence: US)
  Receive Date: 20120327
  Receipt Date: 20120918
  Transmission Date: 20130627
  Serious: No
  Sender: FDA-Public Use
  Company Number: US-PFIZER INC-2012073842

PATIENT
  Age: 61 Year
  Sex: Female

DRUGS (1)
  1. GLUCOTROL XL [Suspect]
     Dosage: 10 mg, 1x/day (po) at noon
     Route: 048

REACTIONS (1)
  - Fatigue [Unknown]
